FAERS Safety Report 13298159 (Version 1)
Quarter: 2017Q1

REPORT INFORMATION
  Report Type: Spontaneous
  Country: None (occurrence: US)
  Receive Date: 20170304
  Receipt Date: 20170304
  Transmission Date: 20170428
  Serious: Yes (Hospitalization)
  Sender: FDA-Public Use
  Company Number: None

PATIENT
  Age: 49 Year
  Sex: Male
  Weight: 93.52 kg

DRUGS (6)
  1. DOXORUBICIN HYDROCHLORIDE. [Suspect]
     Active Substance: DOXORUBICIN HYDROCHLORIDE
     Dates: end: 20170221
  2. PREDNISONE. [Suspect]
     Active Substance: PREDNISONE
     Dates: end: 20170221
  3. ETOPOSIDE (VP-16) [Concomitant]
     Active Substance: ETOPOSIDE
     Dates: end: 20170221
  4. RITUXIMAB (MOAB C2B8 ANTI CD20, CHIMERIC) [Suspect]
     Active Substance: RITUXIMAB
     Dates: end: 20170221
  5. CYCLOPHOSPHAMIDE. [Suspect]
     Active Substance: CYCLOPHOSPHAMIDE
     Dates: end: 20170221
  6. VINCRISTINE SULFATE. [Suspect]
     Active Substance: VINCRISTINE SULFATE
     Dates: end: 20170221

REACTIONS (4)
  - Productive cough [None]
  - Influenza A virus test positive [None]
  - Chills [None]
  - Febrile neutropenia [None]

NARRATIVE: CASE EVENT DATE: 20170127
